FAERS Safety Report 8322323 (Version 4)
Quarter: 2013Q4

REPORT INFORMATION
  Report Type: Spontaneous
  Country: None (occurrence: None)
  Receive Date: 20111222
  Receipt Date: 20131028
  Transmission Date: 20140711
  Serious: Yes (Disabling, Other)
  Sender: FDA-Public Use
  Company Number: AUR-APL-2011-06199

PATIENT
  Age: 42 Year
  Sex: Male
  Weight: 114 kg

DRUGS (2)
  1. CITALOPRAM HYDROBROMIDE [Suspect]
     Indication: DEPRESSION
     Dosage: 40 MG (40 MG, 1 IN 1 D), ORAL
     Route: 048
     Dates: start: 200910, end: 201111
  2. QUETIAPINE [Suspect]
     Indication: ANXIETY
     Dosage: 600 MG (300 MG, 2 IN 1 D ), ORAL
     Route: 048
     Dates: start: 200608, end: 201104

REACTIONS (2)
  - Fall [None]
  - Electrocardiogram QT prolonged [None]
